FAERS Safety Report 10218769 (Version 3)
Quarter: 2014Q3

REPORT INFORMATION
  Report Type: Spontaneous
  Country: HU (occurrence: HU)
  Receive Date: 20140605
  Receipt Date: 20140723
  Transmission Date: 20150326
  Serious: Yes (Death)
  Sender: FDA-Public Use
  Company Number: HU-PFIZER INC-2014150915

PATIENT
  Age: 60 Year
  Sex: Male

DRUGS (1)
  1. VFEND [Suspect]
     Active Substance: VORICONAZOLE
     Indication: FUNGAL INFECTION
     Dosage: 50 MG, UNK
     Route: 055
     Dates: start: 20140529

REACTIONS (3)
  - Intentional product misuse [Unknown]
  - Gastric haemorrhage [Fatal]
  - Sepsis [Fatal]
